FAERS Safety Report 4822511-7 (Version None)
Quarter: 2005Q4

REPORT INFORMATION
  Report Type: 
  Country: None (occurrence: None)
  Receive Date: 20051108
  Receipt Date: 20051027
  Transmission Date: 20060501
  Serious: Yes (Death)
  Sender: FDA-Public Use
  Company Number: US-JNJFOC-20051005876

PATIENT
  Sex: Male

DRUGS (7)
  1. INFLIXIMAB [Suspect]
     Indication: RHEUMATOID ARTHRITIS
     Route: 042
  2. METHOTREXATE [Concomitant]
  3. NAPROSYN [Concomitant]
  4. ACTONEL [Concomitant]
  5. CALCIUM WITH VITAMIN D [Concomitant]
  6. CALCIUM WITH VITAMIN D [Concomitant]
  7. CALCIUM WITH VITAMIN D [Concomitant]

REACTIONS (1)
  - NON-SMALL CELL LUNG CANCER METASTATIC [None]
